FAERS Safety Report 21235544 (Version 1)
Quarter: 2022Q3

REPORT INFORMATION
  Report Type: Spontaneous
  Country: US (occurrence: US)
  Receive Date: 20220821
  Receipt Date: 20220821
  Transmission Date: 20221026
  Serious: No
  Sender: FDA-Public Use
  Company Number: US-JNJFOC-20220830540

PATIENT
  Age: 8 Decade
  Sex: Female

DRUGS (1)
  1. IMODIUM MULTI-SYMPTOM RELIEF [Suspect]
     Active Substance: DIMETHICONE\LOPERAMIDE HYDROCHLORIDE
     Indication: Diarrhoea
     Dosage: ONE CAPSULE I JUST USED IT FOR THREE  TIMES
     Route: 065
     Dates: start: 20220803

REACTIONS (1)
  - Retching [Unknown]

NARRATIVE: CASE EVENT DATE: 20220803
